FAERS Safety Report 6541683-X (Version None)
Quarter: 2010Q1

REPORT INFORMATION
  Report Type: 
  Country: None (occurrence: None)
  Receive Date: 20100119
  Receipt Date: 20100104
  Transmission Date: 20100710
  Serious: Yes (Disabling, Other)
  Sender: FDA-Public Use
  Company Number: GB-MYLANLABS-2010S1000118

PATIENT
  Age: 47 Year
  Sex: Male
  Weight: 60 kg

DRUGS (5)
  1. CITALOPRAM HYDROBROMIDE [Suspect]
     Indication: DRUG USE FOR UNKNOWN INDICATION
  2. GOLD [Suspect]
     Indication: BACK PAIN
     Dates: start: 20081001, end: 20090201
  3. VENLAFAXINE [Concomitant]
     Indication: DRUG USE FOR UNKNOWN INDICATION
  4. CLOMIPRAMINE [Concomitant]
     Indication: DRUG USE FOR UNKNOWN INDICATION
  5. FLUVOXAMINE [Concomitant]
     Indication: DRUG USE FOR UNKNOWN INDICATION

REACTIONS (7)
  - ANXIETY [None]
  - DECREASED APPETITE [None]
  - HALLUCINATIONS, MIXED [None]
  - POOR QUALITY SLEEP [None]
  - PSYCHOTIC DISORDER [None]
  - SUICIDAL IDEATION [None]
  - VERTIGO [None]
